FAERS Safety Report 14145701 (Version 3)
Quarter: 2017Q4

REPORT INFORMATION
  Report Type: Spontaneous
  Country: NL (occurrence: NL)
  Receive Date: 20171031
  Receipt Date: 20171110
  Transmission Date: 20180321
  Serious: Yes (Hospitalization)
  Sender: FDA-Public Use
  Company Number: NL-NOVOPROD-563870

PATIENT
  Age: 57 Year
  Sex: Male
  Weight: 125 kg

DRUGS (3)
  1. RYZODEG 70/30 [Suspect]
     Active Substance: INSULIN ASPART\INSULIN DEGLUDEC
     Indication: TYPE 2 DIABETES MELLITUS
     Dosage: 62 U, QD (AS 36U -0- 26U)
     Route: 058
  2. NOVORAPID [Concomitant]
     Active Substance: INSULIN ASPART
     Dosage: 2 U
     Route: 065
  3. RYZODEG 70/30 [Suspect]
     Active Substance: INSULIN ASPART\INSULIN DEGLUDEC
     Dosage: 52 IU, QD (32 -0- 20IU)
     Route: 058
     Dates: start: 20170831

REACTIONS (7)
  - Cholecystitis [Unknown]
  - Renal impairment [Unknown]
  - Pancreatitis [Unknown]
  - Aspiration [Unknown]
  - Myocardial ischaemia [Unknown]
  - Hypoglycaemia [Recovering/Resolving]
  - Cholangitis infective [Unknown]

NARRATIVE: CASE EVENT DATE: 20170830
